FAERS Safety Report 17816732 (Version 3)
Quarter: 2024Q1

REPORT INFORMATION
  Report Type: Report from Study
  Country: JP (occurrence: JP)
  Receive Date: 20200522
  Receipt Date: 20240319
  Transmission Date: 20240410
  Serious: Yes (Hospitalization, Other)
  Sender: FDA-Public Use
  Company Number: JP-PFIZER INC-2020203586

PATIENT
  Age: 72 Year
  Sex: Male
  Weight: 56 kg

DRUGS (1)
  1. VYNDAQEL [Suspect]
     Active Substance: TAFAMIDIS MEGLUMINE
     Indication: Cardiac amyloidosis
     Dosage: 80 MG, 1X/DAY
     Route: 048
     Dates: start: 20200310, end: 20200311

REACTIONS (1)
  - Pneumonia aspiration [Recovered/Resolved]

NARRATIVE: CASE EVENT DATE: 20200312
